FAERS Safety Report 18584603 (Version 1)
Quarter: 2020Q4

REPORT INFORMATION
  Report Type: Spontaneous
  Country: AT (occurrence: AT)
  Receive Date: 20201207
  Receipt Date: 20201207
  Transmission Date: 20210114
  Serious: Yes (Other)
  Sender: FDA-Public Use
  Company Number: NVSC2020AT322186

PATIENT
  Age: 5 Month
  Sex: Female

DRUGS (1)
  1. VOTUBIA [Suspect]
     Active Substance: EVEROLIMUS
     Indication: STURGE-WEBER SYNDROME
     Dosage: 1.7 MG, QD (1X A DAY)
     Route: 065
     Dates: start: 20201112

REACTIONS (5)
  - Bacterial infection [Recovered/Resolved]
  - Product use in unapproved indication [Unknown]
  - Thrombocytopenia [Recovered/Resolved]
  - Underdose [Unknown]
  - Wrong technique in product usage process [Unknown]

NARRATIVE: CASE EVENT DATE: 20201112
